FAERS Safety Report 9709433 (Version 1)
Quarter: 2013Q4

REPORT INFORMATION
  Report Type: Spontaneous
  Country: AR (occurrence: AR)
  Receive Date: 20131126
  Receipt Date: 20131126
  Transmission Date: 20140711
  Serious: Yes (Hospitalization)
  Sender: FDA-Public Use
  Company Number: AR-009507513-1311ARG009395

PATIENT
  Age: 72 Year
  Sex: Female

DRUGS (2)
  1. INTRON A PEG [Suspect]
     Indication: HEPATITIS C
     Dosage: UNK, QM
     Route: 058
     Dates: start: 20130604
  2. VICTRELIS [Suspect]
     Indication: HEPATITIS C
     Dosage: DAILY
     Route: 048
     Dates: start: 20130705

REACTIONS (4)
  - Dehydration [Unknown]
  - Diarrhoea [Unknown]
  - Hospitalisation [Unknown]
  - Inappropriate schedule of drug administration [Unknown]
